FAERS Safety Report 25338238 (Version 2)
Quarter: 2025Q2

REPORT INFORMATION
  Report Type: Spontaneous
  Country: BR (occurrence: BR)
  Receive Date: 20250520
  Receipt Date: 20250618
  Transmission Date: 20250717
  Serious: Yes (Other)
  Sender: ELI LILLY AND COMPANY
  Company Number: BR-ELI_LILLY_AND_COMPANY-BR202504014708

PATIENT
  Age: 57 Year
  Sex: Male
  Weight: 134 kg

DRUGS (8)
  1. TALTZ [Suspect]
     Active Substance: IXEKIZUMAB
     Indication: Ankylosing spondylitis
     Route: 058
     Dates: start: 2024
  2. GABAPENTIN [Concomitant]
     Active Substance: GABAPENTIN
     Indication: Anxiety
     Dosage: 300 MG, DAILY (1 MORNING - 2 AFTERNOON - 2 NIGHT)
     Route: 065
  3. TRAZODONE HYDROCHLORIDE [Concomitant]
     Active Substance: TRAZODONE HYDROCHLORIDE
     Indication: Product used for unknown indication
     Route: 065
  4. PATZ [Concomitant]
     Indication: Product used for unknown indication
     Route: 065
  5. OLMESARTAN [Concomitant]
     Active Substance: OLMESARTAN
     Indication: Product used for unknown indication
     Dosage: 40 MG, DAILY (5-40 MG)
  6. ZINPASS [Concomitant]
     Indication: Product used for unknown indication
     Dosage: 40 MG, DAILY (40/10MG 1TIME PER DAY)
     Route: 065
  7. ASPIRIN\DIHYDROXYALUMINUM AMINOACETATE ANHYDROUS\MAGNESIUM CARBONATE [Concomitant]
     Active Substance: ASPIRIN\DIHYDROXYALUMINUM AMINOACETATE ANHYDROUS\MAGNESIUM CARBONATE
     Indication: Product used for unknown indication
     Dosage: 100 MG, DAILY
     Route: 065
  8. CLOPIDOGREL [Concomitant]
     Active Substance: CLOPIDOGREL BISULFATE
     Indication: Product used for unknown indication
     Dosage: 75 MG, DAILY
     Route: 065

REACTIONS (9)
  - Coronary artery disease [Unknown]
  - Headache [Unknown]
  - Sleep disorder [Unknown]
  - Dizziness [Unknown]
  - Myalgia [Unknown]
  - Mood altered [Unknown]
  - Cataract [Unknown]
  - Balance disorder [Unknown]
  - Injection site pain [Recovered/Resolved]

NARRATIVE: CASE EVENT DATE: 20250414
